FAERS Safety Report 6686470-7 (Version None)
Quarter: 2010Q2

REPORT INFORMATION
  Report Type: 
  Country: None (occurrence: None)
  Receive Date: 20100415
  Receipt Date: 20100406
  Transmission Date: 20101027
  Serious: Yes (Other)
  Sender: FDA-Public Use
  Company Number: 2010US001175

PATIENT
  Age: 76 Year
  Sex: Male

DRUGS (10)
  1. VESICARE [Suspect]
     Indication: DRUG USE FOR UNKNOWN INDICATION
     Dosage: 10 MG, UID/QD, ORAL
     Route: 048
  2. DAYPRO [Concomitant]
  3. FOLIC ACID [Concomitant]
  4. MOBIC [Concomitant]
  5. STOOL SOFTENER [Concomitant]
  6. LORTAB (PARACETAMOL, PROMETHIAZINE HYDROCHLORIDE) [Concomitant]
  7. AMBIEN [Concomitant]
  8. TRAMADOL HCL [Concomitant]
  9. NAPROXEN [Concomitant]
  10. MULTIVITAMIN [Concomitant]

REACTIONS (6)
  - ABNORMAL BEHAVIOUR [None]
  - ENURESIS [None]
  - HIP ARTHROPLASTY [None]
  - MALIGNANT MELANOMA [None]
  - SLEEP TALKING [None]
  - SOMNAMBULISM [None]
